FAERS Safety Report 5034273-1 (Version None)
Quarter: 2006Q2

REPORT INFORMATION
  Report Type: 
  Country: None (occurrence: None)
  Receive Date: 20060626
  Receipt Date: 20060131
  Transmission Date: 20061013
  Serious: Yes (Hospitalization, Other)
  Sender: FDA-Public Use
  Company Number: GB-BRISTOL-MYERS SQUIBB COMPANY-13264619

PATIENT
  Age: 22 Year
  Sex: Male

DRUGS (7)
  1. PRAVASTATIN SODIUM [Suspect]
  2. CYCLOSPORINE [Interacting]
     Indication: HEART TRANSPLANT
  3. AZATHIOPRINE [Concomitant]
     Indication: IMMUNOSUPPRESSION
     Route: 048
  4. PREDNISOLONE [Concomitant]
     Indication: IMMUNOSUPPRESSION
  5. RAMIPRIL [Concomitant]
     Route: 048
  6. FUROSEMIDE [Concomitant]
     Indication: LOWER RESPIRATORY TRACT INFECTION
     Route: 048
  7. ASPIRIN [Concomitant]
     Route: 048

REACTIONS (8)
  - BLOOD CREATINE INCREASED [None]
  - BLOOD CREATINE PHOSPHOKINASE INCREASED [None]
  - DEEP VEIN THROMBOSIS [None]
  - DRUG INTERACTION [None]
  - FIBRIN D DIMER INCREASED [None]
  - OEDEMA PERIPHERAL [None]
  - RHABDOMYOLYSIS [None]
  - TENDERNESS [None]
